FAERS Safety Report 15176648 (Version 5)
Quarter: 2020Q2

REPORT INFORMATION
  Report Type: Report from Study
  Country: US (occurrence: US)
  Receive Date: 20180720
  Receipt Date: 20200514
  Transmission Date: 20200713
  Serious: Yes (Hospitalization, Other)
  Sender: FDA-Public Use
  Company Number: US-TESARO, INC.-US-2018TSO02348

PATIENT
  Age: 45 Year
  Sex: Female
  Weight: 63.8 kg

DRUGS (3)
  1. BEVACIZUMAB. [Suspect]
     Active Substance: BEVACIZUMAB
     Indication: BREAST CANCER
     Dosage: 950 MG, UNK
     Route: 042
     Dates: start: 20180425, end: 20180425
  2. DOSTARLIMAB [Suspect]
     Active Substance: DOSTARLIMAB
     Indication: BREAST CANCER
     Dosage: 500 MG, UNK
     Route: 042
     Dates: start: 20180425, end: 20180425
  3. NIRAPARIB [Suspect]
     Active Substance: NIRAPARIB
     Indication: BREAST CANCER
     Dosage: 200 MG, QD
     Route: 048
     Dates: end: 20180510

REACTIONS (1)
  - Vertebral artery dissection [Recovered/Resolved]

NARRATIVE: CASE EVENT DATE: 20180510
